FAERS Safety Report 18593073 (Version 1)
Quarter: 2020Q4

REPORT INFORMATION
  Report Type: Spontaneous
  Country: US (occurrence: US)
  Receive Date: 20201209
  Receipt Date: 20201209
  Transmission Date: 20210114
  Serious: No
  Sender: FDA-Public Use
  Company Number: US-BION-008605

PATIENT
  Sex: Female

DRUGS (1)
  1. VITAMIN D2 [Suspect]
     Active Substance: ERGOCALCIFEROL
     Indication: PRODUCT USED FOR UNKNOWN INDICATION
     Dosage: STRENGTH: 50,000 IU

REACTIONS (2)
  - Product odour abnormal [Unknown]
  - Poor quality product administered [Not Recovered/Not Resolved]
